FAERS Safety Report 9473996 (Version 2)
Quarter: 2013Q3

REPORT INFORMATION
  Report Type: Report from Study
  Country: NL (occurrence: NL)
  Receive Date: 20130823
  Receipt Date: 20130823
  Transmission Date: 20140515
  Serious: Yes (Other)
  Sender: FDA-Public Use
  Company Number: NL-ABBOTT-13P-114-1075267-00

PATIENT
  Age: 81 Year
  Sex: Male
  Weight: 63 kg

DRUGS (3)
  1. LUCRIN [Suspect]
     Indication: PROSTATE CANCER
     Route: 058
     Dates: start: 201302
  2. BICALUTAMIDE [Concomitant]
     Indication: PROSTATE CANCER
     Route: 048
     Dates: start: 201211
  3. OXAZEPAM [Concomitant]
     Indication: INSOMNIA

REACTIONS (6)
  - Lymphoma [Unknown]
  - Lung neoplasm [Unknown]
  - Tongue neoplasm malignant stage unspecified [Unknown]
  - Pruritus [Not Recovered/Not Resolved]
  - Hot flush [Not Recovered/Not Resolved]
  - Weight decreased [Not Recovered/Not Resolved]
